FAERS Safety Report 7417767-0 (Version None)
Quarter: 2011Q2

REPORT INFORMATION
  Report Type: 
  Country: None (occurrence: None)
  Receive Date: 20110415
  Receipt Date: 20110412
  Transmission Date: 20111010
  Serious: Yes (Death)
  Sender: FDA-Public Use
  Company Number: CO-PFIZER INC-2011081446

PATIENT
  Age: 78 Year
  Sex: Female

DRUGS (5)
  1. NIFEDIPINE [Concomitant]
     Dosage: 30 MG, 1 TABLET, EVERY 12 HOURS
  2. METOPROLOL [Concomitant]
     Dosage: 100 MG, 1X/DAY
  3. ACETYLSALICYLIC ACID [Concomitant]
     Dosage: 100 MG, 1X/DAY
  4. LIPITOR [Suspect]
     Indication: DYSLIPIDAEMIA
     Dosage: 10 MG, 1X/DAY
     Dates: start: 20071201
  5. HYDROCHLOROTHIAZIDE AND OLMESARTAN [Suspect]
     Indication: HYPERTENSION
     Dosage: OLMESARTAN MEDOXOMIL 20 MG / HYDROCHLOROTHIAZIDE 12.5 MG, 1X/DAY
     Dates: start: 20071201

REACTIONS (1)
  - DEATH [None]
